FAERS Safety Report 9271733 (Version 2)
Quarter: 2013Q4

REPORT INFORMATION
  Report Type: Report from Study
  Country: DE (occurrence: DE)
  Receive Date: 20130506
  Receipt Date: 20131001
  Transmission Date: 20140711
  Serious: Yes (Hospitalization)
  Sender: FDA-Public Use
  Company Number: DE-SHIRE-ALL1-2013-02763

PATIENT
  Age: 16 Year
  Sex: Male
  Weight: 63 kg

DRUGS (3)
  1. IDURSULFASE [Suspect]
     Indication: MUCOPOLYSACCHARIDOSIS II
     Dosage: 0.5 MG/KG, 1X/WEEK
     Route: 041
     Dates: start: 20040310
  2. METHYLPHENIDATE [Concomitant]
     Indication: ABNORMAL BEHAVIOUR
     Dosage: 30 MG, 1X/DAY:QD
     Route: 048
     Dates: start: 2010
  3. METHYLPHENIDATE [Concomitant]
     Dosage: 15 MG, 1X/DAY:QD
     Route: 048
     Dates: start: 200801, end: 20090318

REACTIONS (1)
  - Medical device complication [Recovered/Resolved]
